FAERS Safety Report 10090686 (Version 4)
Quarter: 2014Q2

REPORT INFORMATION
  Report Type: Report from Study
  Country: US (occurrence: US)
  Receive Date: 20140421
  Receipt Date: 20140522
  Transmission Date: 20141212
  Serious: Yes (Death, Hospitalization)
  Sender: FDA-Public Use
  Company Number: US-SA-2014SA050276

PATIENT
  Age: 62 Year
  Sex: Female
  Weight: 77.5 kg

DRUGS (1)
  1. CLOFARABINE [Suspect]
     Indication: PRODUCT USED FOR UNKNOWN INDICATION
     Route: 065
     Dates: start: 20140402, end: 20140406

REACTIONS (3)
  - Febrile neutropenia [Fatal]
  - Lung infection [Not Recovered/Not Resolved]
  - Respiratory failure [Fatal]
